FAERS Safety Report 17314804 (Version 2)
Quarter: 2021Q1

REPORT INFORMATION
  Report Type: Spontaneous
  Country: US (occurrence: US)
  Receive Date: 20200124
  Receipt Date: 20210122
  Transmission Date: 20210419
  Serious: No
  Sender: FDA-Public Use
  Company Number: US-PCCINC-2019-PEL-000141

PATIENT

DRUGS (2)
  1. GABLOFEN [Suspect]
     Active Substance: BACLOFEN
     Indication: MUSCLE SPASTICITY
     Dosage: 580 MICROGRAM PER DAY
     Route: 037
  2. GABLOFEN [Suspect]
     Active Substance: BACLOFEN
     Indication: CEREBRAL PALSY

REACTIONS (2)
  - Keloid scar [Not Recovered/Not Resolved]
  - Product dose omission issue [Recovered/Resolved]

NARRATIVE: CASE EVENT DATE: 20190426
